FAERS Safety Report 14477583 (Version 1)
Quarter: 2018Q1

REPORT INFORMATION
  Report Type: Report from Study
  Country: US (occurrence: US)
  Receive Date: 20180201
  Receipt Date: 20180201
  Transmission Date: 20180509
  Serious: No
  Sender: FDA-Public Use
  Company Number: US-EXELIXIS-CABO-17010166

PATIENT
  Age: 71 Year
  Sex: Female

DRUGS (14)
  1. VITAMIN C [Concomitant]
     Active Substance: ASCORBIC ACID
  2. ONDANSETRON [Concomitant]
     Active Substance: ONDANSETRON
  3. OXYCODONE-ACET [Concomitant]
     Active Substance: ACETAMINOPHEN\OXYCODONE HYDROCHLORIDE
  4. LIDOCAINE VISCOUS [Concomitant]
     Active Substance: LIDOCAINE HYDROCHLORIDE
  5. LISINOPRIL. [Concomitant]
     Active Substance: LISINOPRIL
  6. KETOCONAZOLE. [Concomitant]
     Active Substance: KETOCONAZOLE
  7. LEVOTHYROXIN [Concomitant]
     Active Substance: LEVOTHYROXINE
  8. NYSTATIN. [Concomitant]
     Active Substance: NYSTATIN
  9. HYDROCORTISONE. [Concomitant]
     Active Substance: HYDROCORTISONE
  10. CABOMETYX [Suspect]
     Active Substance: CABOZANTINIB S-MALATE
     Indication: RENAL CANCER
     Dosage: 60 MG, QD
     Route: 048
     Dates: start: 20170727
  11. TRIAMCINOLON [Concomitant]
  12. DRONABINOL. [Concomitant]
     Active Substance: DRONABINOL
  13. SERTRALINE HCL [Concomitant]
     Active Substance: SERTRALINE HYDROCHLORIDE
  14. MORPHINE SULFATE. [Concomitant]
     Active Substance: MORPHINE SULFATE

REACTIONS (10)
  - Faeces soft [Unknown]
  - Stomatitis [Not Recovered/Not Resolved]
  - Blister [Recovered/Resolved]
  - Fatigue [Unknown]
  - Breast pain [Unknown]
  - Chapped lips [Unknown]
  - Lip swelling [Unknown]
  - Oral pain [Unknown]
  - Back pain [Unknown]
  - Nausea [Unknown]

NARRATIVE: CASE EVENT DATE: 20170821
